FAERS Safety Report 23550508 (Version 2)
Quarter: 2024Q1

REPORT INFORMATION
  Report Type: Report from Study
  Country: US (occurrence: US)
  Receive Date: 20240221
  Receipt Date: 20240223
  Transmission Date: 20240409
  Serious: Yes (Other)
  Sender: FDA-Public Use
  Company Number: US-MYLANLABS-2023M1112659

PATIENT
  Age: 59 Year
  Sex: Female
  Weight: 103 kg

DRUGS (2)
  1. GLATIRAMER ACETATE [Suspect]
     Active Substance: GLATIRAMER ACETATE
     Indication: Relapsing-remitting multiple sclerosis
     Dosage: 40 MILLIGRAM, 3XW
     Route: 058
  2. GLATIRAMER ACETATE [Suspect]
     Active Substance: GLATIRAMER ACETATE
     Indication: Multiple sclerosis
     Dosage: START DATE (08-JAN-2024) 40 MILLIGRAM, 3XW
     Route: 058

REACTIONS (13)
  - Angina pectoris [Unknown]
  - Dizziness [Recovered/Resolved]
  - Taste disorder [Recovered/Resolved]
  - Injection site pain [Unknown]
  - Injection site swelling [Unknown]
  - Injection site erythema [Unknown]
  - Injection site mass [Unknown]
  - Injection site pruritus [Unknown]
  - Erythema [Recovered/Resolved]
  - Nervousness [Recovered/Resolved]
  - Chest pain [Recovered/Resolved]
  - Flushing [Unknown]
  - Tremor [Unknown]

NARRATIVE: CASE EVENT DATE: 20231115
